FAERS Safety Report 8560299-7 (Version None)
Quarter: 2012Q3

REPORT INFORMATION
  Report Type: 
  Country: None (occurrence: None)
  Receive Date: 20120802
  Receipt Date: 20120719
  Transmission Date: 20120928
  Serious: Yes (Other)
  Sender: FDA-Public Use
  Company Number: PT-ELI_LILLY_AND_COMPANY-PT201207006181

PATIENT
  Age: 35 Year
  Sex: Female

DRUGS (2)
  1. CYMBALTA [Suspect]
     Dosage: 60MG, DAILY
     Route: 048
     Dates: start: 20120201
  2. FLUOXETINE HYDROCHLORIDE [Suspect]
     Dosage: UNK, UNK

REACTIONS (1)
  - TOXIC SKIN ERUPTION [None]
